FAERS Safety Report 4853702-7 (Version None)
Quarter: 2005Q4

REPORT INFORMATION
  Report Type: 
  Country: None (occurrence: None)
  Receive Date: 20051212
  Receipt Date: 20051201
  Transmission Date: 20060501
  Serious: Yes (Death, Life-Threatening, Hospitalization)
  Sender: FDA-Public Use
  Company Number: FR200511002150

PATIENT
  Age: 63 Year
  Sex: Male
  Weight: 60 kg

DRUGS (3)
  1. ALIMTA [Suspect]
     Indication: LUNG NEOPLASM MALIGNANT
     Dosage: 885 MG, OTHER, INTRAVENOUS
     Route: 042
     Dates: start: 20050330, end: 20050330
  2. FOLIC ACID [Concomitant]
  3. DEXAMETHASONE [Concomitant]

REACTIONS (8)
  - ANAEMIA [None]
  - NEUTROPENIA [None]
  - PURPURA [None]
  - RASH PUSTULAR [None]
  - RENAL FAILURE ACUTE [None]
  - SEPTIC SHOCK [None]
  - SKIN EXFOLIATION [None]
  - THROMBOCYTOPENIA [None]
